FAERS Safety Report 5125845-4 (Version None)
Quarter: 2006Q3

REPORT INFORMATION
  Report Type: 
  Country: None (occurrence: None)
  Receive Date: 20060818
  Receipt Date: 20060427
  Transmission Date: 20061208
  Serious: No
  Sender: FDA-Public Use
  Company Number: SUS1-2006-00459

PATIENT
  Age: 45 Year
  Sex: Female
  Weight: 73 kg

DRUGS (7)
  1. FOSRENOL [Suspect]
     Indication: HYPERPHOSPHATAEMIA
     Dosage: 1000 MG, 3X/DAY:TID
     Dates: start: 20051001
  2. MOTRIN [Concomitant]
  3. EPOGEN [Concomitant]
  4. FERROUS SULFATE TAB [Concomitant]
  5. KLONOPIN [Concomitant]
  6. NEPHROCAPS (VITAMINS NOS, FOLIC ACID) [Concomitant]
  7. ZOCOR [Concomitant]

REACTIONS (1)
  - ULTRASOUND KIDNEY ABNORMAL [None]
